FAERS Safety Report 7722479-X (Version None)
Quarter: 2011Q3

REPORT INFORMATION
  Report Type: 
  Country: None (occurrence: None)
  Receive Date: 20110831
  Receipt Date: 20110824
  Transmission Date: 20111222
  Serious: Yes (Other)
  Sender: FDA-Public Use
  Company Number: CA-PFIZER INC-2011197623

PATIENT
  Age: 66 Year
  Sex: Female

DRUGS (6)
  1. XALATAN [Suspect]
     Dosage: UNK
     Dates: start: 20070101
  2. XALATAN [Suspect]
     Indication: GLAUCOMA
     Dosage: 1 GTT IN BOTH EYES, 1X/DAY
     Route: 047
     Dates: start: 20100101
  3. FOSAMAX [Concomitant]
     Indication: ARTHRITIS
     Dosage: UNK
  4. TYLENOL-500 [Concomitant]
     Indication: ANALGESIC THERAPY
     Dosage: UNK
  5. FUROSEMIDE [Concomitant]
     Indication: HYPERTENSION
     Dosage: 20 MG, 1X/DAY
  6. ATACAND [Concomitant]
     Indication: HYPERTENSION
     Dosage: 32 MG, 1X/DAY

REACTIONS (2)
  - DRUG INEFFECTIVE [None]
  - INTRAOCULAR PRESSURE INCREASED [None]
